FAERS Safety Report 15202040 (Version 1)
Quarter: 2018Q3

REPORT INFORMATION
  Report Type: Spontaneous
  Country: US (occurrence: US)
  Receive Date: 20180627
  Receipt Date: 20180627
  Transmission Date: 20181010
  Serious: Yes (Other)
  Sender: FDA-Public Use
  Company Number: None

PATIENT
  Age: 28 Year
  Sex: Male
  Weight: 80.74 kg

DRUGS (4)
  1. PRILOSEC [Suspect]
     Active Substance: OMEPRAZOLE MAGNESIUM
  2. ESOMEPRAZOLE [Suspect]
     Active Substance: ESOMEPRAZOLE
  3. PROTONIX [Suspect]
     Active Substance: PANTOPRAZOLE SODIUM
  4. NEXIUM [Concomitant]
     Active Substance: ESOMEPRAZOLE MAGNESIUM

REACTIONS (3)
  - Therapeutic response changed [None]
  - Product substitution issue [None]
  - Drug intolerance [None]

NARRATIVE: CASE EVENT DATE: 20150916
